FAERS Safety Report 6013192-8 (Version None)
Quarter: 2008Q4

REPORT INFORMATION
  Report Type: 
  Country: None (occurrence: None)
  Receive Date: 20081219
  Receipt Date: 20081215
  Transmission Date: 20090506
  Serious: Yes (Other)
  Sender: FDA-Public Use
  Company Number: US-ELI_LILLY_AND_COMPANY-US200812004032

PATIENT
  Sex: Female
  Weight: 79.365 kg

DRUGS (7)
  1. BYETTA [Suspect]
     Indication: TYPE 2 DIABETES MELLITUS
     Dosage: 5 UG, 2/D
     Route: 058
     Dates: start: 20060101
  2. DIOVAN [Concomitant]
     Indication: BLOOD PRESSURE
     Dosage: UNK, UNKNOWN
  3. ALLOPURINOL [Concomitant]
     Indication: GOUT
     Dosage: UNK, UNKNOWN
  4. FEXOFENADINE HYDROCHLORIDE [Concomitant]
     Indication: SINUS DISORDER
     Dosage: UNK, UNKNOWN
  5. SIMVASTATIN [Concomitant]
     Indication: BLOOD CHOLESTEROL
     Dosage: UNK, UNKNOWN
  6. METFORMIN HCL [Concomitant]
     Indication: TYPE 2 DIABETES MELLITUS
     Dosage: UNK, UNKNOWN
  7. PROPRANOLOL [Concomitant]
     Indication: BLOOD PRESSURE
     Dosage: UNK, UNKNOWN

REACTIONS (7)
  - ASTHENOPIA [None]
  - EYE HAEMORRHAGE [None]
  - HYPERSENSITIVITY [None]
  - NASOPHARYNGITIS [None]
  - OROPHARYNGEAL PAIN [None]
  - RHINORRHOEA [None]
  - VISUAL IMPAIRMENT [None]
